FAERS Safety Report 7820648-1 (Version None)
Quarter: 2011Q4

REPORT INFORMATION
  Report Type: 
  Country: None (occurrence: None)
  Receive Date: 20111018
  Receipt Date: 20111013
  Transmission Date: 20120403
  Serious: Yes (Hospitalization)
  Sender: FDA-Public Use
  Company Number: NZ-B.I. PHARMACEUTICALS,INC./RIDGEFIELD-2011-AU-01532AU

PATIENT
  Sex: Male

DRUGS (6)
  1. PRADAXA [Suspect]
     Dosage: 300 MG
     Dates: start: 20110818, end: 20110901
  2. FUROSEMIDE [Concomitant]
  3. DOXAZOSIN MESYLATE [Concomitant]
  4. SIMVASTATIN [Concomitant]
  5. DILTIAZEM HCL [Concomitant]
     Dosage: 240 MG
  6. ALLOPURINOL [Concomitant]
     Dosage: 100 MG

REACTIONS (2)
  - HAEMORRHAGE [None]
  - MALAISE [None]
